FAERS Safety Report 8216821-3 (Version None)
Quarter: 2012Q1

REPORT INFORMATION
  Report Type: 
  Country: None (occurrence: None)
  Receive Date: 20120316
  Receipt Date: 20120308
  Transmission Date: 20120608
  Serious: Yes (Life-Threatening, Other)
  Sender: FDA-Public Use
  Company Number: JP-MERCK-1112USA01682

PATIENT
  Age: 64 Year
  Sex: Male
  Weight: 64 kg

DRUGS (10)
  1. LOXONIN [Suspect]
     Indication: SPINAL OSTEOARTHRITIS
     Route: 048
     Dates: start: 20110120, end: 20110929
  2. ASPIRIN [Concomitant]
     Dosage: ENT
     Route: 048
     Dates: start: 20100826
  3. NORVASC [Concomitant]
     Route: 048
     Dates: start: 20100826
  4. ACTOS [Concomitant]
     Route: 048
     Dates: start: 20100826
  5. BEZAFIBRATE [Concomitant]
     Route: 048
     Dates: start: 20100826
  6. JANUVIA [Suspect]
     Indication: DIABETES MELLITUS
     Route: 048
     Dates: start: 20100521, end: 20111201
  7. TAMSULOSIN HCL [Suspect]
     Indication: BENIGN PROSTATIC HYPERPLASIA
     Route: 048
     Dates: start: 20110601
  8. CANDESARTAN CILEXETIL [Concomitant]
     Route: 048
     Dates: start: 20100826
  9. OPALMON [Concomitant]
     Indication: SPINAL OSTEOARTHRITIS
     Route: 048
     Dates: start: 20110120, end: 20110129
  10. ENALAPRIL MALEATE [Concomitant]
     Route: 048
     Dates: start: 20110826

REACTIONS (1)
  - INTERSTITIAL LUNG DISEASE [None]
